FAERS Safety Report 8383338-5 (Version None)
Quarter: 2012Q2

REPORT INFORMATION
  Report Type: 
  Country: None (occurrence: None)
  Receive Date: 20120524
  Receipt Date: 20120521
  Transmission Date: 20120825
  Serious: Yes (Death, Hospitalization)
  Sender: FDA-Public Use
  Company Number: JP-B.I. PHARMACEUTICALS,INC./RIDGEFIELD-2012-BP-01816NB

PATIENT
  Sex: Male
  Weight: 67.9 kg

DRUGS (15)
  1. ASPIRIN [Suspect]
     Dosage: 100 MG
     Route: 048
     Dates: start: 20110201, end: 20120115
  2. LIPITOR [Concomitant]
     Dosage: 5 MG
     Route: 048
     Dates: start: 20060307, end: 20120115
  3. DRAMAMINE [Concomitant]
     Route: 048
     Dates: start: 20110427, end: 20120115
  4. PRADAXA [Suspect]
     Indication: ATRIAL FIBRILLATION
     Dosage: 220 MG
     Route: 048
     Dates: start: 20110322, end: 20120115
  5. RABEPRAZOLE SODIUM [Concomitant]
     Dosage: 10 MG
     Route: 065
     Dates: end: 20120113
  6. METFORMIN HCL [Concomitant]
     Dosage: 500 MG
     Route: 048
     Dates: start: 20070807, end: 20120115
  7. PAXIL [Concomitant]
     Dosage: 10 MG
     Route: 048
     Dates: start: 20051213, end: 20120115
  8. LASIX [Concomitant]
     Dosage: 20 MG
     Route: 048
     Dates: start: 20110214, end: 20120115
  9. AMARYL [Concomitant]
     Route: 048
     Dates: start: 20060328, end: 20120115
  10. LANSOPRAZOLE [Concomitant]
     Dosage: 15 MG
     Route: 048
     Dates: start: 20120113, end: 20120115
  11. PLAVIX [Suspect]
     Dosage: 75 MG
     Route: 048
     Dates: start: 20110201, end: 20120115
  12. ISOSORBIDE MONONITRATE [Concomitant]
     Dosage: 40 MG
     Route: 048
     Dates: start: 19930401, end: 20120115
  13. EPLERENONE [Concomitant]
     Dosage: 50 MG
     Route: 048
     Dates: start: 20110214, end: 20120115
  14. DILTIAZEM HCL [Concomitant]
     Dosage: 100 MG
     Route: 048
     Dates: start: 19930401, end: 20120115
  15. CEPHADOL [Concomitant]
     Route: 048
     Dates: start: 20101029, end: 20120115

REACTIONS (1)
  - SUBDURAL HAEMATOMA [None]
